FAERS Safety Report 4976113-2 (Version None)
Quarter: 2006Q2

REPORT INFORMATION
  Report Type: 
  Country: None (occurrence: None)
  Receive Date: 20060413
  Receipt Date: 20060403
  Transmission Date: 20061013
  Serious: Yes (Other)
  Sender: FDA-Public Use
  Company Number: 2006RR-01916

PATIENT
  Age: 1 Year
  Sex: Female

DRUGS (5)
  1. ENALAPRIL MALEATE [Suspect]
     Indication: HYPERTENSION
  2. METOPROLOL TARTRATE [Concomitant]
  3. AMLODOPINE (AMLODIPINE) [Concomitant]
  4. ALITIZIDE-SPIRONOLACTONE (SPIRONOLACTONE, ALTIZIDE) [Concomitant]
  5. HYDROCHLOROTHIAZIDE [Concomitant]

REACTIONS (4)
  - DRUG INEFFECTIVE [None]
  - RENAL ARTERY STENOSIS [None]
  - RENAL FAILURE ACUTE [None]
  - RENAL ISCHAEMIA [None]
